FAERS Safety Report 5508254-5 (Version None)
Quarter: 2007Q4

REPORT INFORMATION
  Report Type: 
  Country: None (occurrence: None)
  Receive Date: 20071106
  Receipt Date: 20070514
  Transmission Date: 20080405
  Serious: No
  Sender: FDA-Public Use
  Company Number: A0651310A

PATIENT
  Age: 6 Year
  Sex: Male
  Weight: 20.7 kg

DRUGS (1)
  1. AMOXICILLIN [Suspect]
     Dosage: 400MG TWICE PER DAY
     Route: 048
     Dates: start: 20070509

REACTIONS (1)
  - DIARRHOEA [None]
